FAERS Safety Report 9852092 (Version 6)
Quarter: 2014Q3

REPORT INFORMATION
  Report Type: Spontaneous
  Country: JP (occurrence: JP)
  Receive Date: 20140129
  Receipt Date: 20140909
  Transmission Date: 20150326
  Serious: Yes (Death, Hospitalization, Other)
  Sender: FDA-Public Use
  Company Number: JP-ELI_LILLY_AND_COMPANY-JP201401007091

PATIENT
  Age: 65 Year
  Sex: Female
  Weight: 57 kg

DRUGS (13)
  1. GLYCYRON [Concomitant]
     Active Substance: AMMONIUM GLYCYRRHIZATE\GLYCINE\METHIONINE
     Indication: PROPHYLAXIS
     Route: 048
  2. MELOXICAM. [Concomitant]
     Active Substance: MELOXICAM
     Indication: ANALGESIC THERAPY
     Dosage: 10 MG, QD
     Route: 048
     Dates: start: 20131105, end: 20131217
  3. VONAFEC [Concomitant]
     Active Substance: DICLOFENAC SODIUM
     Dosage: UNK
     Route: 054
     Dates: start: 20131213
  4. REBAMIPIDE [Concomitant]
     Active Substance: REBAMIPIDE
     Dosage: 100 MG, QD
     Route: 048
     Dates: start: 20131224, end: 20140101
  5. URSO [Concomitant]
     Active Substance: URSODIOL
     Indication: PROPHYLAXIS
     Route: 048
  6. ATELEC [Concomitant]
     Active Substance: CILNIDIPINE
     Route: 048
  7. MELOXICAM. [Concomitant]
     Active Substance: MELOXICAM
     Dosage: 10 MG, QD
     Route: 048
     Dates: start: 20131224, end: 20140101
  8. NEUROTROPIN [Concomitant]
     Active Substance: NEUROTROPIN
     Indication: ANALGESIC THERAPY
     Dosage: UNK
     Route: 058
     Dates: start: 20131213, end: 20131224
  9. EVISTA [Suspect]
     Active Substance: RALOXIFENE HYDROCHLORIDE
     Indication: OSTEOPOROSIS POSTMENOPAUSAL
     Dosage: 60 MG, QD
     Route: 048
     Dates: start: 20131214, end: 20131229
  10. REBAMIPIDE [Concomitant]
     Active Substance: REBAMIPIDE
     Indication: GASTRITIS
     Dosage: 100 MG, QD
     Route: 048
     Dates: start: 20131105, end: 20131217
  11. NABOAL                             /00372302/ [Concomitant]
     Indication: ANALGESIC THERAPY
     Dosage: 30 MG, QD
     Route: 062
     Dates: start: 20130903, end: 201401
  12. DICLOFENAC SODIUM. [Concomitant]
     Active Substance: DICLOFENAC SODIUM
     Indication: ANALGESIC THERAPY
     Dosage: 15 MG, QD
     Route: 062
     Dates: start: 20131214, end: 201401
  13. CARBOCAINE [Concomitant]
     Active Substance: MEPIVACAINE HYDROCHLORIDE
     Indication: ANALGESIC THERAPY
     Dosage: UNK
     Route: 058
     Dates: start: 20131213, end: 20131224

REACTIONS (2)
  - Cardiac failure [Unknown]
  - Drug-induced liver injury [Fatal]

NARRATIVE: CASE EVENT DATE: 20131220
